FAERS Safety Report 15096049 (Version 1)
Quarter: 2018Q2

REPORT INFORMATION
  Report Type: Spontaneous
  Country: US (occurrence: US)
  Receive Date: 20180609
  Receipt Date: 20180609
  Transmission Date: 20180711
  Serious: No
  Sender: FDA-Public Use
  Company Number: None

PATIENT
  Sex: Female
  Weight: 80.1 kg

DRUGS (6)
  1. ARMODAFINIL. [Concomitant]
     Active Substance: ARMODAFINIL
  2. BUPROPION. [Concomitant]
     Active Substance: BUPROPION
  3. DULOXETINE. [Concomitant]
     Active Substance: DULOXETINE
  4. NORGESTIMATE [Concomitant]
     Active Substance: NORGESTIMATE
  5. ETHINYL ESTRADIOL [Concomitant]
     Active Substance: ETHINYL ESTRADIOL
  6. TRINTELLIX [Suspect]
     Active Substance: VORTIOXETINE HYDROBROMIDE
     Indication: DEPRESSION
     Dosage: ?          QUANTITY:1 DF DOSAGE FORM;?
     Route: 048

REACTIONS (1)
  - Pruritus generalised [None]
